FAERS Safety Report 5202379-X (Version None)
Quarter: 2006Q4

REPORT INFORMATION
  Report Type: 
  Country: None (occurrence: None)
  Receive Date: 20061012
  Receipt Date: 20060619
  Transmission Date: 20070319
  Serious: No
  Sender: FDA-Public Use
  Company Number: 2006S1000116

PATIENT
  Age: 54 Year
  Sex: Male
  Weight: 99 kg

DRUGS (12)
  1. CUBICIN [Suspect]
     Indication: WOUND INFECTION STAPHYLOCOCCAL
     Dosage: 500 MG; QD; IV
     Route: 042
  2. ASPIRIN [Concomitant]
  3. HYDROCODONE BITARTRATE [Concomitant]
  4. POTASSIUM ACETATE [Concomitant]
  5. LISINOPRIL [Concomitant]
  6. WELLBUTRIN [Concomitant]
  7. PLAVIX [Concomitant]
  8. OXYCONTIN [Concomitant]
  9. RIFAMPICIN [Concomitant]
  10. METOPROLOL SUCCINATE [Concomitant]
  11. XANAX [Concomitant]
  12. NIACIN [Concomitant]

REACTIONS (1)
  - CHILLS [None]
